FAERS Safety Report 17757895 (Version 1)
Quarter: 2020Q2

REPORT INFORMATION
  Report Type: Report from Study
  Country: FR (occurrence: FR)
  Receive Date: 20200507
  Receipt Date: 20200507
  Transmission Date: 20200714
  Serious: Yes (Other)
  Sender: FDA-Public Use
  Company Number: FR-CELGENEUS-FRA-20200408841

PATIENT
  Weight: 110 kg

DRUGS (2)
  1. ISTODAX [Suspect]
     Active Substance: ROMIDEPSIN
     Indication: CUTANEOUS T-CELL LYMPHOMA
     Dosage: ON DAYS 1, 8, 15 OF EACH 26-DAY?CYCLE
     Route: 041
     Dates: start: 20200120
  2. ISTODAX [Suspect]
     Active Substance: ROMIDEPSIN
     Dosage: 7 MILLIGRAM/SQ. METER
     Route: 041
     Dates: start: 20200430

REACTIONS (2)
  - Hepatic failure [Unknown]
  - Thrombocytopenia [Unknown]
